FAERS Safety Report 8425976-7 (Version None)
Quarter: 2012Q2

REPORT INFORMATION
  Report Type: 
  Country: None (occurrence: None)
  Receive Date: 20120601
  Receipt Date: 20120529
  Transmission Date: 20120825
  Serious: Yes (Life-Threatening)
  Sender: FDA-Public Use
  Company Number: 2012SP028730

PATIENT
  Age: 68 Year
  Sex: Female

DRUGS (1)
  1. TEMODAL [Suspect]
     Indication: GLIOBLASTOMA MULTIFORME
     Dosage: 120 MG; QD; PO
     Route: 048
     Dates: start: 20120523, end: 20120524

REACTIONS (1)
  - PULMONARY EMBOLISM [None]
